FAERS Safety Report 26117703 (Version 1)
Quarter: 2025Q4

REPORT INFORMATION
  Report Type: Spontaneous
  Country: US (occurrence: None)
  Receive Date: 20251203
  Receipt Date: 20251203
  Transmission Date: 20260117
  Serious: Yes (Hospitalization)
  Sender: FDA-CTU
  Company Number: None

PATIENT
  Sex: Female

DRUGS (11)
  1. TEZSPIRE [Suspect]
     Active Substance: TEZEPELUMAB-EKKO
     Indication: Asthma
     Dosage: INJECT 1 PEN UNDER THE SKIN (SUBCUTANEOUS INJECTION) EVERY FOUR WEEKS
     Route: 058
     Dates: start: 20251112
  2. ALBUTEROL [Concomitant]
     Active Substance: ALBUTEROL
  3. AMLODIPINE [Concomitant]
     Active Substance: AMLODIPINE BESYLATE
  4. BUDESONIDE [Concomitant]
     Active Substance: BUDESONIDE
  5. FUROSEMIDE POW [Concomitant]
  6. GABAPENTIN [Concomitant]
     Active Substance: GABAPENTIN
  7. LEVOTHYROXINE [Concomitant]
     Active Substance: LEVOTHYROXINE
  8. MONTELUKAST GRA [Concomitant]
  9. STIOLTO AER [Concomitant]
  10. TRAMADOL HCL [Concomitant]
     Active Substance: TRAMADOL HYDROCHLORIDE
  11. XANAXA [Concomitant]

REACTIONS (3)
  - Paraesthesia [None]
  - Impaired quality of life [None]
  - Drug ineffective [None]
